FAERS Safety Report 6810887-0 (Version None)
Quarter: 2010Q2

REPORT INFORMATION
  Report Type: 
  Country: None (occurrence: None)
  Receive Date: 20100630
  Receipt Date: 20081104
  Transmission Date: 20101027
  Serious: No
  Sender: FDA-Public Use
  Company Number: US-PFIZER INC-2008086267

PATIENT
  Sex: Female
  Weight: 88.18 kg

DRUGS (2)
  1. NICOTROL [Suspect]
     Indication: SMOKING CESSATION THERAPY
     Route: 055
     Dates: end: 20081013
  2. ALL OTHER THERAPEUTIC PRODUCTS [Concomitant]

REACTIONS (5)
  - DIZZINESS [None]
  - DYSPHAGIA [None]
  - HYPERHIDROSIS [None]
  - SWOLLEN TONGUE [None]
  - TONGUE DRY [None]
